FAERS Safety Report 7467291-4 (Version None)
Quarter: 2011Q2

REPORT INFORMATION
  Report Type: 
  Country: None (occurrence: None)
  Receive Date: 20110509
  Receipt Date: 20110504
  Transmission Date: 20111010
  Serious: No
  Sender: FDA-Public Use
  Company Number: US-PFIZER INC-2011095977

PATIENT
  Sex: Male

DRUGS (1)
  1. ADVIL LIQUI-GELS [Suspect]
     Dosage: UNK
     Route: 048

REACTIONS (1)
  - HEART RATE INCREASED [None]
